FAERS Safety Report 6212815-8 (Version None)
Quarter: 2009Q2

REPORT INFORMATION
  Report Type: 
  Country: None (occurrence: None)
  Receive Date: 20090601
  Receipt Date: 20090521
  Transmission Date: 20091009
  Serious: Yes (Hospitalization)
  Sender: FDA-Public Use
  Company Number: AE-2009-057

PATIENT
  Age: 45 Year
  Sex: Female

DRUGS (2)
  1. HYDROCHLOROTHIAZIDE [Suspect]
     Dosage: 25MG, QD
  2. RAMIPRIL [Concomitant]

REACTIONS (3)
  - ENCEPHALOPATHY [None]
  - HYPONATRAEMIA [None]
  - RHABDOMYOLYSIS [None]
